FAERS Safety Report 11618132 (Version 1)
Quarter: 2015Q4

REPORT INFORMATION
  Report Type: Spontaneous
  Country: US (occurrence: US)
  Receive Date: 20151010
  Receipt Date: 20151010
  Transmission Date: 20160304
  Serious: Yes (Hospitalization, Other)
  Sender: FDA-Public Use
  Company Number: PHEH2015US019183

PATIENT
  Age: 46 Year
  Sex: Female
  Weight: 95 kg

DRUGS (5)
  1. GLEEVEC [Suspect]
     Active Substance: IMATINIB MESYLATE
     Indication: CHRONIC MYELOID LEUKAEMIA
     Dosage: 400 MG, QD
     Route: 048
     Dates: start: 20150728, end: 20150801
  2. HUMALOG [Concomitant]
     Active Substance: INSULIN LISPRO
     Indication: PRODUCT USED FOR UNKNOWN INDICATION
     Route: 058
  3. DRAMAMINE [Concomitant]
     Active Substance: DIMENHYDRINATE
     Indication: PRODUCT USED FOR UNKNOWN INDICATION
     Dosage: UNK UNK, PRN
     Route: 048
  4. ACID REDUCER//RANITIDINE HYDROCHLORIDE [Concomitant]
     Indication: PRODUCT USED FOR UNKNOWN INDICATION
     Dosage: 150 MG, BID
     Route: 048
  5. RENAGEL [Concomitant]
     Active Substance: SEVELAMER HYDROCHLORIDE
     Indication: PRODUCT USED FOR UNKNOWN INDICATION
     Dosage: 800 MG, TID
     Route: 048

REACTIONS (22)
  - Swelling face [Recovered/Resolved]
  - Weight increased [Unknown]
  - Body mass index increased [Unknown]
  - Thyroid neoplasm [Unknown]
  - Nausea [Unknown]
  - Dizziness [Unknown]
  - Hypoaesthesia [Unknown]
  - Swollen tongue [Recovered/Resolved]
  - Dyspepsia [Unknown]
  - Hypersensitivity [Unknown]
  - Hot flush [Unknown]
  - Paraesthesia [Unknown]
  - Orthopnoea [Unknown]
  - Heart rate increased [Unknown]
  - Fatigue [Recovering/Resolving]
  - Hypoparathyroidism [Unknown]
  - Arthritis [Unknown]
  - Epistaxis [Unknown]
  - Dysgeusia [Unknown]
  - Tinnitus [Unknown]
  - Oedema peripheral [Unknown]
  - Hypertension [Unknown]

NARRATIVE: CASE EVENT DATE: 20150801
